FAERS Safety Report 19696386 (Version 1)
Quarter: 2021Q3

REPORT INFORMATION
  Report Type: Spontaneous
  Country: FR (occurrence: FR)
  Receive Date: 20210813
  Receipt Date: 20210813
  Transmission Date: 20211014
  Serious: Yes (Hospitalization)
  Sender: FDA-Public Use
  Company Number: FR-TAKEDA-2021TEU007038

PATIENT
  Age: 77 Year
  Sex: Male
  Weight: 84 kg

DRUGS (3)
  1. OGASTORO [Suspect]
     Active Substance: LANSOPRAZOLE
     Indication: GASTRIC ULCER
     Dosage: 30 MILLIGRAM, QD
     Route: 048
     Dates: start: 20210625, end: 20210709
  2. PLAQUENIL [Suspect]
     Active Substance: HYDROXYCHLOROQUINE SULFATE
     Indication: SKIN DISORDER
     Dosage: 400 MILLIGRAM, QD
     Route: 048
     Dates: start: 20210609, end: 20210704
  3. HYDROXYZINE [Suspect]
     Active Substance: HYDROXYZINE HYDROCHLORIDE
     Indication: MENTAL DISORDER
     Dosage: 25 MILLIGRAM, QD
     Route: 048
     Dates: start: 20210625

REACTIONS (1)
  - Acute generalised exanthematous pustulosis [Recovered/Resolved]

NARRATIVE: CASE EVENT DATE: 20210703
